FAERS Safety Report 20633203 (Version 1)
Quarter: 2022Q1

REPORT INFORMATION
  Report Type: Report from Study
  Country: US (occurrence: None)
  Receive Date: 20220324
  Receipt Date: 20220324
  Transmission Date: 20220423
  Serious: Yes (Hospitalization)
  Sender: FDA-Public Use
  Company Number: US-ROCHE-3055365

PATIENT
  Age: 67 Year
  Sex: Female
  Weight: 49 kg

DRUGS (9)
  1. RITUXIMAB [Suspect]
     Active Substance: RITUXIMAB
     Indication: Mantle cell lymphoma
     Route: 042
     Dates: start: 20220214, end: 20220214
  2. RITUXIMAB [Suspect]
     Active Substance: RITUXIMAB
     Dosage: THIS DOSE WAS OFF TRIAL.
     Route: 042
     Dates: start: 20220218, end: 20220218
  3. VENETOCLAX [Suspect]
     Active Substance: VENETOCLAX
     Indication: Mantle cell lymphoma
     Route: 048
     Dates: start: 20220214, end: 20220214
  4. VENETOCLAX [Suspect]
     Active Substance: VENETOCLAX
     Dosage: THIS DOSE WAS OFF TRIAL.
     Route: 048
     Dates: start: 20220219
  5. POLATUZUMAB VEDOTIN [Suspect]
     Active Substance: POLATUZUMAB VEDOTIN
     Indication: Mantle cell lymphoma
     Dosage: POLATUZUMAB VEDOTIN IV OVER 30-90 MINUTES ON DAY 1 OF 21 DAY CYCLE. TOTAL 6 CYCLES.
     Route: 042
     Dates: start: 20220214, end: 20220214
  6. RIVAROXABAN [Concomitant]
     Active Substance: RIVAROXABAN
     Indication: Deep vein thrombosis
     Dates: start: 20220112, end: 20220214
  7. FAMOTIDINE [Concomitant]
     Active Substance: FAMOTIDINE
  8. BENADRYL [Concomitant]
     Active Substance: DIPHENHYDRAMINE HYDROCHLORIDE
  9. URICASE [Concomitant]

REACTIONS (6)
  - Hypoxia [Not Recovered/Not Resolved]
  - Platelet count decreased [Not Recovered/Not Resolved]
  - Tumour lysis syndrome [Not Recovered/Not Resolved]
  - White blood cell count decreased [Not Recovered/Not Resolved]
  - Neutrophil count decreased [Not Recovered/Not Resolved]
  - Anaemia [Not Recovered/Not Resolved]

NARRATIVE: CASE EVENT DATE: 20220214
